FAERS Safety Report 16824797 (Version 1)
Quarter: 2019Q3

REPORT INFORMATION
  Report Type: Report from Study
  Country: US (occurrence: US)
  Receive Date: 20190918
  Receipt Date: 20190918
  Transmission Date: 20191005
  Serious: Yes (Other)
  Sender: FDA-Public Use
  Company Number: US-BEH-2019106373

PATIENT
  Age: 68 Year
  Sex: Male
  Weight: 108.84 kg

DRUGS (4)
  1. HIZENTRA [Suspect]
     Active Substance: HUMAN IMMUNOGLOBULIN G
     Dosage: 4 GRAM, QW
     Route: 058
     Dates: start: 20190826, end: 20190903
  2. HIZENTRA [Suspect]
     Active Substance: HUMAN IMMUNOGLOBULIN G
     Indication: IMMUNODEFICIENCY
     Dosage: 16 GRAM, QW
     Route: 058
     Dates: start: 20190826
  3. HIZENTRA [Suspect]
     Active Substance: HUMAN IMMUNOGLOBULIN G
     Indication: PRIMARY IMMUNODEFICIENCY SYNDROME
     Dosage: 2 GRAM, QW
     Route: 058
     Dates: start: 20190826, end: 20190903
  4. HIZENTRA [Suspect]
     Active Substance: HUMAN IMMUNOGLOBULIN G
     Dosage: 10 GRAM, QW
     Route: 058
     Dates: start: 20190826, end: 20190903

REACTIONS (7)
  - Headache [Recovering/Resolving]
  - Lethargy [Recovered/Resolved]
  - Diarrhoea [Recovering/Resolving]
  - Dizziness [Recovered/Resolved]
  - Pain [Recovered/Resolved]
  - Abdominal discomfort [Recovering/Resolving]
  - Syncope [Recovered/Resolved]

NARRATIVE: CASE EVENT DATE: 20190827
